FAERS Safety Report 6019617-6 (Version None)
Quarter: 2008Q4

REPORT INFORMATION
  Report Type: 
  Country: None (occurrence: None)
  Receive Date: 20081222
  Receipt Date: 20080515
  Transmission Date: 20090506
  Serious: Yes (Other)
  Sender: FDA-Public Use
  Company Number: US-JNJFOC-20080503696

PATIENT
  Age: 82 Year
  Sex: Female
  Weight: 56.6996 kg

DRUGS (3)
  1. MOTRIN TAB [Suspect]
     Indication: TOOTHACHE
     Dosage: 25 MG, 1 IN 1 TOTAL, ORAL
     Route: 048
     Dates: start: 20080514, end: 20080514
  2. LEVOXYL [Concomitant]
  3. ATACAND [Concomitant]

REACTIONS (1)
  - HYPERSENSITIVITY [None]
